FAERS Safety Report 6425782-9 (Version None)
Quarter: 2009Q4

REPORT INFORMATION
  Report Type: 
  Country: None (occurrence: None)
  Receive Date: 20091103
  Receipt Date: 20091020
  Transmission Date: 20100525
  Serious: Yes (Hospitalization)
  Sender: FDA-Public Use
  Company Number: JP-MERCK-99050386

PATIENT
  Age: 48 Year
  Sex: Male

DRUGS (8)
  1. PEPCID [Suspect]
     Indication: ABDOMINAL PAIN
     Route: 048
     Dates: start: 19981001, end: 19990410
  2. PEPCID [Suspect]
     Route: 048
     Dates: start: 19880422, end: 19980101
  3. ALDACTONE [Concomitant]
     Indication: HEPATIC CIRRHOSIS
     Route: 048
     Dates: start: 19880422
  4. SOLDACTONE [Concomitant]
     Route: 042
  5. SLOW-K [Concomitant]
     Indication: HYPOKALAEMIA
     Route: 065
     Dates: start: 19880422, end: 19990507
  6. AMINO ACIDS [Concomitant]
     Indication: HEPATIC CIRRHOSIS
     Route: 065
     Dates: start: 19880422
  7. AMINO ACIDS [Concomitant]
     Indication: HYPOPROTEINAEMIA
     Route: 065
     Dates: start: 19880422
  8. LASIX [Concomitant]
     Indication: HEPATIC CIRRHOSIS
     Route: 065
     Dates: start: 19880422, end: 19990410

REACTIONS (5)
  - ELECTROCARDIOGRAM QT PROLONGED [None]
  - HEPATIC CIRRHOSIS [None]
  - OEDEMA [None]
  - OLIGURIA [None]
  - WEIGHT INCREASED [None]
